FAERS Safety Report 7545170-1 (Version None)
Quarter: 2011Q2

REPORT INFORMATION
  Report Type: 
  Country: None (occurrence: None)
  Receive Date: 20110614
  Receipt Date: 20110602
  Transmission Date: 20111010
  Serious: Yes (Hospitalization)
  Sender: FDA-Public Use
  Company Number: CO-ELI_LILLY_AND_COMPANY-CO201106001194

PATIENT
  Age: 68 Year
  Sex: Female

DRUGS (8)
  1. HYDROCHLOROTHIAZIDE [Concomitant]
     Dosage: UNK
     Route: 065
  2. MIACALCIN [Concomitant]
     Dosage: UNK
     Route: 065
  3. LEVOTHYROXINE SODIUM [Concomitant]
     Dosage: UNK
     Route: 065
  4. SCHERISOLON [Concomitant]
     Dosage: UNK
     Route: 065
  5. CALCIUM +VIT D [Concomitant]
     Indication: SUPPLEMENTATION THERAPY
     Dosage: UNK
     Route: 065
  6. ENALAPRIL MALEATE [Concomitant]
     Dosage: UNK
     Route: 065
  7. FORTEO [Suspect]
     Indication: OSTEOPOROSIS
     Dosage: 20 UG, QD
     Route: 058
     Dates: start: 20110301
  8. AMLODIPINE [Concomitant]
     Dosage: UNK
     Route: 065

REACTIONS (5)
  - DIARRHOEA [None]
  - DECREASED APPETITE [None]
  - VOMITING [None]
  - DEHYDRATION [None]
  - DEPRESSED MOOD [None]
